FAERS Safety Report 11507571 (Version 1)
Quarter: 2015Q3

REPORT INFORMATION
  Report Type: Spontaneous
  Country: US (occurrence: US)
  Receive Date: 20150903
  Receipt Date: 20150903
  Transmission Date: 20151125
  Serious: No
  Sender: FDA-Public Use
  Company Number: US-ELI_LILLY_AND_COMPANY-US200907003447

PATIENT
  Age: 58 Year
  Sex: Female
  Weight: 113.38 kg

DRUGS (4)
  1. BYETTA [Concomitant]
     Active Substance: EXENATIDE
  2. HUMALOG [Suspect]
     Active Substance: INSULIN LISPRO
     Dates: start: 2007
  3. LEVEMIR [Concomitant]
     Active Substance: INSULIN DETEMIR
  4. HUMALOG [Suspect]
     Active Substance: INSULIN LISPRO
     Dosage: UNK, UNK

REACTIONS (3)
  - Drug dispensing error [Unknown]
  - Visual acuity reduced [Not Recovered/Not Resolved]
  - Wrong drug administered [Unknown]

NARRATIVE: CASE EVENT DATE: 200907
